FAERS Safety Report 9754374 (Version 1)
Quarter: 2013Q4

REPORT INFORMATION
  Report Type: Spontaneous
  Country: US (occurrence: US)
  Receive Date: 20131213
  Receipt Date: 20131213
  Transmission Date: 20140711
  Serious: No
  Sender: FDA-Public Use
  Company Number: US-PFIZER INC-2013355891

PATIENT
  Age: 69 Year
  Sex: Female
  Weight: 52.2 kg

DRUGS (2)
  1. CYTOMEL [Suspect]
     Indication: HYPOTHYROIDISM
     Dosage: 5 UG, 2X/DAY
     Dates: start: 20131209
  2. SYNTHROID [Concomitant]
     Indication: HYPOTHYROIDISM
     Dosage: 75 UG, 1X/DAY

REACTIONS (1)
  - Abdominal pain upper [Not Recovered/Not Resolved]
